FAERS Safety Report 5466519-X (Version None)
Quarter: 2007Q3

REPORT INFORMATION
  Report Type: 
  Country: None (occurrence: None)
  Receive Date: 20070820
  Receipt Date: 20070608
  Transmission Date: 20080115
  Serious: No
  Sender: FDA-Public Use
  Company Number: WAES 0706USA01475

PATIENT
  Age: 61 Year
  Sex: Male

DRUGS (11)
  1. JANUVIA [Suspect]
     Indication: BLOOD GLUCOSE
     Dosage: 100 MG/DAILY/PO
     Route: 048
     Dates: start: 20070524
  2. COUMADIN [Concomitant]
  3. LYRICA [Concomitant]
  4. PERCOCET [Concomitant]
  5. SANCTURA [Concomitant]
  6. ULTRAM [Concomitant]
  7. ZOCOR [Concomitant]
  8. DIGOXIN [Concomitant]
  9. DILTIAZEM HYDROCHLORIDE [Concomitant]
  10. FUROSEMIDE [Concomitant]
  11. HYDRALAZINE HCL [Concomitant]

REACTIONS (1)
  - RHINORRHOEA [None]
